FAERS Safety Report 10905389 (Version 5)
Quarter: 2015Q2

REPORT INFORMATION
  Report Type: Spontaneous
  Country: US (occurrence: US)
  Receive Date: 20150311
  Receipt Date: 20150616
  Transmission Date: 20150821
  Serious: Yes (Hospitalization, Other)
  Sender: FDA-Public Use
  Company Number: US-009507513-1010USA00206

PATIENT
  Sex: Female
  Weight: 79.37 kg

DRUGS (3)
  1. ALENDRONATE SODIUM. [Suspect]
     Active Substance: ALENDRONATE SODIUM
     Route: 048
  2. FOSAMAX [Suspect]
     Active Substance: ALENDRONATE SODIUM
     Indication: OSTEOPOROSIS
     Dosage: 70 MG, QW
     Route: 048
     Dates: start: 20010925, end: 20100110
  3. FOSAMAX [Suspect]
     Active Substance: ALENDRONATE SODIUM
     Indication: BONE DENSITY DECREASED

REACTIONS (47)
  - Joint arthroplasty [Unknown]
  - Haemoglobin decreased [Recovering/Resolving]
  - Acute sinusitis [Unknown]
  - Hysterectomy [Unknown]
  - Constipation [Unknown]
  - Pain in extremity [Unknown]
  - Haematocrit decreased [Recovering/Resolving]
  - Insomnia [Unknown]
  - Hyponatraemia [Unknown]
  - Bursitis [Unknown]
  - Joint stiffness [Unknown]
  - Pain in extremity [Unknown]
  - Thoracic vertebral fracture [Unknown]
  - Hyperlipidaemia [Unknown]
  - Stress urinary incontinence [Unknown]
  - Head injury [Unknown]
  - Spinal disorder [Unknown]
  - Intramedullary rod insertion [Unknown]
  - Rotator cuff repair [Unknown]
  - Haemorrhagic anaemia [Unknown]
  - Bladder operation [Unknown]
  - Hyperchromic anaemia [Unknown]
  - Costochondritis [Unknown]
  - Rotator cuff syndrome [Unknown]
  - Gastrooesophageal reflux disease [Unknown]
  - Femur fracture [Unknown]
  - Femur fracture [Unknown]
  - Foot operation [Unknown]
  - Femur fracture [Recovering/Resolving]
  - Depression [Not Recovered/Not Resolved]
  - Arthralgia [Unknown]
  - Pulmonary embolism [Unknown]
  - Mitral valve prolapse [Unknown]
  - Gravitational oedema [Unknown]
  - Hypertension [Unknown]
  - Neck pain [Unknown]
  - Arthropathy [Unknown]
  - Cardiac failure congestive [Unknown]
  - Fall [Unknown]
  - Hypothyroidism [Unknown]
  - Fall [Unknown]
  - Breast operation [Unknown]
  - Deep vein thrombosis [Unknown]
  - Upper-airway cough syndrome [Unknown]
  - Cardiovascular disorder [Unknown]
  - Fall [Unknown]
  - Bursitis [Unknown]

NARRATIVE: CASE EVENT DATE: 2003
